FAERS Safety Report 23134068 (Version 1)
Quarter: 2023Q4

REPORT INFORMATION
  Report Type: Spontaneous
  Country: CA (occurrence: CA)
  Receive Date: 20231101
  Receipt Date: 20231101
  Transmission Date: 20240110
  Serious: Yes (Other)
  Sender: FDA-Public Use
  Company Number: CA-Covis Pharma GmbH-2023COV01770

PATIENT
  Age: 61 Year
  Sex: Male

DRUGS (1)
  1. RILUZOLE [Suspect]
     Active Substance: RILUZOLE
     Indication: Amyotrophic lateral sclerosis
     Dosage: 50 MG BID
     Route: 048

REACTIONS (3)
  - Foreign body in throat [Unknown]
  - Cough [Unknown]
  - Pharyngeal hypoaesthesia [Unknown]
